FAERS Safety Report 14765738 (Version 1)
Quarter: 2018Q2

REPORT INFORMATION
  Report Type: Spontaneous
  Country: US (occurrence: US)
  Receive Date: 20180416
  Receipt Date: 20180416
  Transmission Date: 20180711
  Serious: Yes (Other)
  Sender: FDA-Public Use
  Company Number: US-TEVA-2018-US-880345

PATIENT
  Age: 84 Year
  Sex: Female
  Weight: 57 kg

DRUGS (5)
  1. PROAIR HFA [Suspect]
     Active Substance: ALBUTEROL SULFATE
     Route: 065
  2. VENLAFAXINE [Concomitant]
     Active Substance: VENLAFAXINE HYDROCHLORIDE
  3. MELATONIN [Concomitant]
     Active Substance: MELATONIN
  4. MODAFINIL. [Concomitant]
     Active Substance: MODAFINIL
  5. LATANOPROST. [Concomitant]
     Active Substance: LATANOPROST

REACTIONS (5)
  - Intraocular pressure increased [Unknown]
  - Wrong technique in product usage process [Unknown]
  - Glaucoma [Unknown]
  - Macular degeneration [Unknown]
  - Drug prescribing error [Unknown]

NARRATIVE: CASE EVENT DATE: 201704
